FAERS Safety Report 8845953 (Version 1)
Quarter: 2012Q4

REPORT INFORMATION
  Report Type: 
  Country: US (occurrence: US)
  Receive Date: 20121017
  Receipt Date: 20121017
  Transmission Date: 20130627
  Serious: Yes (Other)
  Sender: FDA-Public Use
  Company Number: US-ASTRAZENECA-2012SE77276

PATIENT
  Sex: Male

DRUGS (3)
  1. ARIMIDEX [Suspect]
     Route: 048
  2. TAMOXIFEN [Suspect]
     Route: 048
  3. AROMASIN [Concomitant]

REACTIONS (3)
  - Pulmonary mass [Unknown]
  - Metastases to chest wall [Unknown]
  - Disease progression [Unknown]
